FAERS Safety Report 6809746-9 (Version None)
Quarter: 2010Q2

REPORT INFORMATION
  Report Type: 
  Country: None (occurrence: None)
  Receive Date: 20100630
  Receipt Date: 20100617
  Transmission Date: 20101027
  Serious: Yes (Other)
  Sender: FDA-Public Use
  Company Number: US-TEVA-238247USA

PATIENT
  Sex: Male
  Weight: 130 kg

DRUGS (2)
  1. COPAXONE [Suspect]
     Indication: MULTIPLE SCLEROSIS
     Route: 058
  2. MITOXANTRONE HYDROCHLORIDE [Suspect]
     Indication: MULTIPLE SCLEROSIS
     Dosage: ONCE EVERY 3 MONTHS
     Route: 042
     Dates: start: 20070831, end: 20090801

REACTIONS (1)
  - ACUTE MYELOID LEUKAEMIA [None]
